FAERS Safety Report 6494008-2 (Version None)
Quarter: 2009Q4

REPORT INFORMATION
  Report Type: 
  Country: None (occurrence: None)
  Receive Date: 20091214
  Receipt Date: 20081209
  Transmission Date: 20100525
  Serious: No
  Sender: FDA-Public Use
  Company Number: US-BRISTOL-MYERS SQUIBB COMPANY-14436653

PATIENT
  Age: 2 Decade
  Sex: Female

DRUGS (5)
  1. ABILIFY [Suspect]
     Indication: DEPRESSION
  2. ABILIFY [Suspect]
     Indication: MILD MENTAL RETARDATION
  3. ABILIFY [Suspect]
     Indication: AGGRESSION
  4. SEROQUEL [Concomitant]
     Dosage: THERAPY DURATION: TAKEN FOR MORE THAN 6 MONTHS
  5. EFFEXOR [Concomitant]
     Dosage: THERAPY DURATION: TAKEN FOR MORE THAN 6 MONTHS

REACTIONS (1)
  - TARDIVE DYSKINESIA [None]
